FAERS Safety Report 15844553 (Version 3)
Quarter: 2019Q1

REPORT INFORMATION
  Report Type: Report from Study
  Country: None (occurrence: CN)
  Receive Date: 20190118
  Receipt Date: 20190131
  Transmission Date: 20190417
  Serious: Yes (Death, Life-Threatening)
  Sender: FDA-Public Use
  Company Number: CN-ABBVIE-19P-035-2624246-00

PATIENT
  Age: 67 Year
  Sex: Female
  Weight: 66 kg

DRUGS (17)
  1. VENETOCLAX. [Suspect]
     Active Substance: VENETOCLAX
     Indication: ACUTE MYELOID LEUKAEMIA
     Route: 048
     Dates: start: 20181211, end: 20181211
  2. VENETOCLAX. [Suspect]
     Active Substance: VENETOCLAX
     Route: 048
     Dates: start: 20181212, end: 20181212
  3. ALLOPURINOL. [Concomitant]
     Active Substance: ALLOPURINOL
     Indication: PROPHYLAXIS
     Route: 048
     Dates: start: 20181210, end: 20181228
  4. VENETOCLAX. [Suspect]
     Active Substance: VENETOCLAX
     Route: 048
     Dates: start: 20181213, end: 20190107
  5. OMEPRAZOLE. [Concomitant]
     Active Substance: OMEPRAZOLE
     Indication: GASTROOESOPHAGEAL REFLUX PROPHYLAXIS
     Route: 042
     Dates: start: 20181210, end: 20181228
  6. HEPATOCYTE GROWTH-PROMOTING FACTORS [Concomitant]
     Indication: BLOOD LACTATE DEHYDROGENASE INCREASED
     Route: 042
     Dates: start: 20181212, end: 20181228
  7. PALONOSETRON. [Concomitant]
     Active Substance: PALONOSETRON HYDROCHLORIDE
     Indication: PROPHYLAXIS OF NAUSEA AND VOMITING
     Route: 042
     Dates: start: 20181212, end: 20181229
  8. GM-CSF [Concomitant]
     Active Substance: GRANULOCYTE-MACROPHAGE COLONY-STIMULATING FACTOR
     Indication: NEUTROPENIA
  9. POTASSIUM CHLORIDE. [Concomitant]
     Active Substance: POTASSIUM CHLORIDE
     Indication: HYPOKALAEMIA
     Route: 042
     Dates: start: 20190114, end: 20190114
  10. G-CSF [Concomitant]
     Active Substance: GRANULOCYTE COLONY-STIMULATING FACTOR NOS
     Indication: LEUKOPENIA
     Route: 058
     Dates: start: 20181214, end: 20181221
  11. SODIUM BICARBONATE. [Concomitant]
     Active Substance: SODIUM BICARBONATE
     Indication: PROPHYLAXIS
     Route: 042
     Dates: start: 20181210, end: 20181228
  12. NORMAL SALINE [Concomitant]
     Active Substance: SODIUM CHLORIDE
     Indication: PROPHYLAXIS
     Route: 042
     Dates: start: 20181210, end: 20181213
  13. G-CSF [Concomitant]
     Active Substance: GRANULOCYTE COLONY-STIMULATING FACTOR NOS
     Indication: NEUTROPENIA
     Route: 058
     Dates: start: 20181230, end: 20190106
  14. AZACITIDINE. [Suspect]
     Active Substance: AZACITIDINE
     Indication: ACUTE MYELOID LEUKAEMIA
     Dosage: FOR 7 DAYS OF 28 DAY CYCLE
     Route: 058
     Dates: start: 20181211, end: 20181217
  15. HEPATOCYTE GROWTH-PROMOTING FACTORS [Concomitant]
     Indication: ASPARTATE AMINOTRANSFERASE INCREASED
  16. FRUITY POTASSIUM [Concomitant]
     Indication: HYPOKALAEMIA
     Dosage: 2 BAGS
     Route: 048
     Dates: start: 20190108, end: 20190116
  17. GM-CSF [Concomitant]
     Active Substance: GRANULOCYTE-MACROPHAGE COLONY-STIMULATING FACTOR
     Indication: LEUKOPENIA
     Route: 058
     Dates: start: 20181214, end: 20190111

REACTIONS (6)
  - Bacteraemia [Unknown]
  - Haemolysis [Unknown]
  - Pneumonia [Unknown]
  - Blood bilirubin unconjugated increased [Unknown]
  - Death [Fatal]
  - Burkholderia infection [Unknown]

NARRATIVE: CASE EVENT DATE: 20181211
